FAERS Safety Report 8346360-0 (Version None)
Quarter: 2012Q2

REPORT INFORMATION
  Report Type: 
  Country: None (occurrence: None)
  Receive Date: 20120509
  Receipt Date: 20120504
  Transmission Date: 20120825
  Serious: Yes (Hospitalization)
  Sender: FDA-Public Use
  Company Number: US-AMGEN-USASP2011037412

PATIENT
  Age: 62 Year
  Sex: Male

DRUGS (6)
  1. METHOTREXATE [Concomitant]
     Dosage: UNK UNK, QWK
     Route: 048
  2. ENBREL [Suspect]
     Indication: RHEUMATOID ARTHRITIS
     Dosage: UNK UNK, QWK
     Route: 058
     Dates: start: 20110705, end: 20120504
  3. ENBREL [Suspect]
     Dosage: 50 MG, QWK
     Dates: start: 20110401
  4. BENICAR [Concomitant]
     Dosage: 40 MG, QD
  5. OXYCONTIN [Concomitant]
     Dosage: 20 MG, BID
     Route: 048
  6. LEXAPRO [Concomitant]
     Dosage: UNK

REACTIONS (3)
  - INJECTION SITE REACTION [None]
  - HIP ARTHROPLASTY [None]
  - INJECTION SITE ERYTHEMA [None]
